FAERS Safety Report 8779652 (Version 1)
Quarter: 2012Q4

REPORT INFORMATION
  Report Type: 
  Country: US (occurrence: US)
  Receive Date: 20120912
  Receipt Date: 20120912
  Transmission Date: 20130627
  Serious: No
  Sender: FDA-Public Use
  Company Number: US-TEVA-348513USA

PATIENT
  Sex: Female
  Weight: 68.1 kg

DRUGS (4)
  1. QNASL [Suspect]
     Indication: RHINITIS ALLERGIC
     Dosage: 160 mcg
     Dates: start: 20120619
  2. UNSPECIFIED INGREDIENT [Suspect]
     Indication: HYPERTENSION
  3. FOSAMAX [Concomitant]
     Indication: OSTEOPOROSIS
  4. VITAMIN D [Concomitant]

REACTIONS (1)
  - Headache [Recovered/Resolved]
